FAERS Safety Report 4861674-4 (Version None)
Quarter: 2005Q4

REPORT INFORMATION
  Report Type: 
  Country: None (occurrence: None)
  Receive Date: 20051220
  Receipt Date: 20050322
  Transmission Date: 20060501
  Serious: Yes (Hospitalization, Disabling)
  Sender: FDA-Public Use
  Company Number: TH-GILEAD-2005-0008178

PATIENT
  Age: 27 Year
  Sex: Male

DRUGS (5)
  1. TENOFOVIR DISOPROXIL FUMARATE [Suspect]
     Indication: HIV INFECTION
     Dates: start: 20050302
  2. EFV [Suspect]
     Indication: HIV INFECTION
     Dates: start: 20050302
  3. AZT [Concomitant]
     Indication: HIV INFECTION
     Dates: start: 20050309
  4. AZT [Concomitant]
     Dates: start: 20050302, end: 20050308
  5. OMEPRAZOLE [Concomitant]
     Dates: start: 20050323, end: 20050525

REACTIONS (9)
  - ALANINE AMINOTRANSFERASE INCREASED [None]
  - ARTERIAL STENOSIS [None]
  - CEREBROVASCULAR DISORDER [None]
  - DIZZINESS [None]
  - GAMMA-GLUTAMYLTRANSFERASE INCREASED [None]
  - NAUSEA [None]
  - TRANSIENT ISCHAEMIC ATTACK [None]
  - VASCULITIS [None]
  - VOMITING [None]
